FAERS Safety Report 4505964-3 (Version None)
Quarter: 2004Q4

REPORT INFORMATION
  Report Type: 
  Country: None (occurrence: None)
  Receive Date: 20041025
  Receipt Date: 20030930
  Transmission Date: 20050328
  Serious: Yes (Hospitalization)
  Sender: FDA-Public Use
  Company Number: US-JNJFOC-20031001291

PATIENT
  Sex: Female

DRUGS (14)
  1. REMICADE [Suspect]
     Indication: RHEUMATOID ARTHRITIS
     Dosage: 5 MG/KG, INTRAVENOUS
     Route: 042
     Dates: start: 20030604
  2. BEXTRA [Concomitant]
  3. METHOTREXATE [Concomitant]
  4. ASPIRIN [Concomitant]
  5. ALENDRONATE (ALENDRONATE SODIUM) [Concomitant]
  6. SYNTHROID [Concomitant]
  7. TOPROL (METOPROLOL SUCCINATE) [Concomitant]
  8. PREMARIN [Concomitant]
  9. PROVERA [Concomitant]
  10. DYAZIDE [Concomitant]
  11. FURONET (FUROSEMIDE) [Concomitant]
  12. LIPITOR [Concomitant]
  13. PRILOSEC [Concomitant]
  14. NEURONTIN [Concomitant]

REACTIONS (1)
  - BACK PAIN [None]
